FAERS Safety Report 13878669 (Version 12)
Quarter: 2018Q2

REPORT INFORMATION
  Report Type: Spontaneous
  Country: ES (occurrence: ES)
  Receive Date: 20170817
  Receipt Date: 20180411
  Transmission Date: 20180711
  Serious: Yes (Death, Hospitalization, Other)
  Sender: FDA-Public Use
  Company Number: ES-SA-2017SA151234

PATIENT
  Age: 64 Year
  Sex: Male

DRUGS (26)
  1. FLUOROURACIL. [Suspect]
     Active Substance: FLUOROURACIL
     Indication: METASTASES TO LIVER
     Dosage: CYCLIC
     Route: 065
  2. FLUOROURACIL. [Suspect]
     Active Substance: FLUOROURACIL
     Indication: METASTASES TO LIVER
     Dosage: CYCLIC
     Route: 065
  3. IRINOTECAN HYDROCHLORIDE. [Suspect]
     Active Substance: IRINOTECAN HYDROCHLORIDE
     Indication: METASTASES TO LIVER
     Dosage: LIPOSOMAL IRINOTECAN?CYCLIC
     Route: 065
  4. BEVACIZUMAB. [Suspect]
     Active Substance: BEVACIZUMAB
     Indication: RECTOSIGMOID CANCER STAGE IV
     Route: 065
  5. BEVACIZUMAB. [Suspect]
     Active Substance: BEVACIZUMAB
     Indication: METASTASES TO LIVER
     Route: 065
  6. CALCIUM FOLINATE [Suspect]
     Active Substance: LEUCOVORIN CALCIUM
     Indication: RECTOSIGMOID CANCER STAGE IV
     Dosage: CYCLIC
     Route: 065
  7. CETUXIMAB. [Suspect]
     Active Substance: CETUXIMAB
     Indication: METASTASES TO LIVER
     Dosage: CYCLIC
     Route: 065
  8. AFLIBERCEPT [Suspect]
     Active Substance: AFLIBERCEPT
     Indication: METASTASES TO LIVER
     Route: 065
  9. FOLINIC ACID [Suspect]
     Active Substance: LEUCOVORIN
     Indication: METASTASES TO LIVER
     Route: 065
  10. CETUXIMAB. [Suspect]
     Active Substance: CETUXIMAB
     Indication: RECTOSIGMOID CANCER STAGE IV
     Dosage: CYCLIC
     Route: 065
  11. FLUOROURACIL. [Suspect]
     Active Substance: FLUOROURACIL
     Indication: RECTOSIGMOID CANCER STAGE IV
     Dosage: CYCLIC
     Route: 065
  12. BEVACIZUMAB. [Suspect]
     Active Substance: BEVACIZUMAB
     Indication: METASTASES TO LIVER
     Route: 065
  13. AFLIBERCEPT [Suspect]
     Active Substance: AFLIBERCEPT
     Indication: RECTOSIGMOID CANCER STAGE IV
     Route: 065
  14. CAPECITABINE. [Suspect]
     Active Substance: CAPECITABINE
     Indication: RECTOSIGMOID CANCER STAGE IV
     Dosage: CYCLIC (SEVEN CYCLES)
     Route: 065
  15. CALCIUM FOLINATE [Suspect]
     Active Substance: LEUCOVORIN CALCIUM
     Indication: METASTASES TO LIVER
     Dosage: CYCLIC
     Route: 065
  16. CALCIUM FOLINATE [Suspect]
     Active Substance: LEUCOVORIN CALCIUM
     Indication: RECTOSIGMOID CANCER STAGE IV
     Dosage: CYCLIC
     Route: 065
  17. IRINOTECAN HYDROCHLORIDE. [Suspect]
     Active Substance: IRINOTECAN HYDROCHLORIDE
     Indication: RECTOSIGMOID CANCER STAGE IV
     Dosage: LIPOSOMAL IRINOTECAN?CYCLIC
     Route: 065
  18. CAPECITABINE. [Suspect]
     Active Substance: CAPECITABINE
     Indication: RECTOSIGMOID CANCER STAGE IV
     Route: 065
  19. CALCIUM FOLINATE [Suspect]
     Active Substance: LEUCOVORIN CALCIUM
     Indication: METASTASES TO LIVER
     Dosage: CYCLIC
     Route: 065
  20. FOLINIC ACID [Suspect]
     Active Substance: LEUCOVORIN
     Indication: ADENOCARCINOMA OF COLON
     Route: 065
  21. OXALIPLATIN. [Suspect]
     Active Substance: OXALIPLATIN
     Indication: RECTOSIGMOID CANCER STAGE IV
     Route: 065
  22. BEVACIZUMAB. [Suspect]
     Active Substance: BEVACIZUMAB
     Indication: RECTOSIGMOID CANCER STAGE IV
     Route: 065
  23. FLUOROURACIL. [Suspect]
     Active Substance: FLUOROURACIL
     Indication: RECTOSIGMOID CANCER STAGE IV
     Dosage: CYCLIC
     Route: 065
  24. OXALIPLATIN. [Suspect]
     Active Substance: OXALIPLATIN
     Indication: ADENOCARCINOMA OF COLON
     Route: 065
  25. OXALIPLATIN. [Suspect]
     Active Substance: OXALIPLATIN
     Indication: METASTASES TO LIVER
     Route: 065
  26. FOLINIC ACID [Suspect]
     Active Substance: LEUCOVORIN
     Indication: RECTOSIGMOID CANCER STAGE IV
     Route: 065

REACTIONS (26)
  - Tenderness [Fatal]
  - Renal failure [Fatal]
  - Blood creatinine increased [Fatal]
  - Klebsiella infection [Fatal]
  - Candida infection [Fatal]
  - Prothrombin level decreased [Fatal]
  - Pyrexia [Fatal]
  - Inflammation [Fatal]
  - Tachycardia [Fatal]
  - Clostridial infection [Fatal]
  - Neutrophilia [Fatal]
  - Hypotension [Fatal]
  - Musculoskeletal pain [Fatal]
  - Erythema [Fatal]
  - Chills [Fatal]
  - C-reactive protein increased [Fatal]
  - Leukocytosis [Fatal]
  - Blood creatine phosphokinase increased [Fatal]
  - Adenocarcinoma of colon [Fatal]
  - Necrotising fasciitis [Fatal]
  - Blood lactic acid increased [Fatal]
  - Drug ineffective [Fatal]
  - Induration [Fatal]
  - Coagulopathy [Fatal]
  - Proteus infection [Fatal]
  - Neoplasm progression [Fatal]
